FAERS Safety Report 8393477-0 (Version None)
Quarter: 2012Q2

REPORT INFORMATION
  Report Type: 
  Country: None (occurrence: None)
  Receive Date: 20120529
  Receipt Date: 20120517
  Transmission Date: 20120825
  Serious: Yes (Hospitalization)
  Sender: FDA-Public Use
  Company Number: JP-ROCHE-676409

PATIENT
  Sex: Male
  Weight: 22 kg

DRUGS (65)
  1. PREDNISOLONE [Concomitant]
     Route: 048
     Dates: start: 20080329, end: 20080415
  2. PREDNISOLONE [Concomitant]
     Route: 048
     Dates: start: 20080612, end: 20080625
  3. PREDNISOLONE [Concomitant]
     Route: 048
     Dates: start: 20080626, end: 20080709
  4. PREDNISOLONE [Concomitant]
     Route: 048
     Dates: start: 20080710, end: 20080724
  5. PREDNISOLONE [Concomitant]
     Route: 048
     Dates: start: 20080808, end: 20080815
  6. PREDNISOLONE [Concomitant]
     Route: 048
     Dates: start: 20081107, end: 20081203
  7. PREDNISOLONE [Concomitant]
     Route: 048
     Dates: start: 20090205, end: 20090304
  8. SUCRALFATE [Concomitant]
     Route: 048
     Dates: start: 20080723, end: 20090421
  9. HYALEIN [Concomitant]
     Indication: PROPHYLAXIS
     Dosage: DROPS: DROPS (INTRAOCULAR), NOTE: DOSAGE ADJUSTED
     Route: 047
  10. RESTAMIN [Concomitant]
     Indication: PROPHYLAXIS
     Dosage: DRUG: DOSAGE ADJUSTED
     Route: 061
  11. EPINASTINE HYDROCHLORIDE [Concomitant]
     Indication: PRURITUS
     Dosage: DRUG REPORTED AS ALESION(EPINASTINE HYDROCHLORIDE)
     Route: 048
     Dates: start: 20090724, end: 20091201
  12. PREDNISOLONE [Concomitant]
     Route: 048
     Dates: start: 20090108, end: 20090204
  13. HIRUDOID [Concomitant]
     Indication: PROPHYLAXIS
     Dosage: DRUG: HIRUDOID(HEPARINOID), NOTE: DOSAGE ADJUSTED
     Route: 061
  14. SOLU-MEDROL [Concomitant]
     Indication: JUVENILE ARTHRITIS
     Dosage: ROUTE: INTRAVENOUS DRIP, FORM:INJECTABLE.
     Route: 042
     Dates: start: 20100108, end: 20100110
  15. SOLU-MEDROL [Concomitant]
     Dosage: ROUTE: INTRAVENOUS DRIP, FORM:INJECTABLE.
     Route: 042
     Dates: start: 20100115, end: 20100117
  16. ACTEMRA [Suspect]
     Route: 041
     Dates: start: 20090521, end: 20090101
  17. PREDNISOLONE [Concomitant]
     Route: 048
     Dates: start: 20080517, end: 20080528
  18. PREDNISOLONE [Concomitant]
     Route: 048
     Dates: start: 20080529, end: 20080611
  19. PREDNISOLONE [Concomitant]
     Route: 048
     Dates: start: 20080828, end: 20080910
  20. PREDNISOLONE [Concomitant]
     Route: 048
     Dates: start: 20090911, end: 20091203
  21. SUCRALFATE [Concomitant]
     Route: 048
     Dates: start: 20080405, end: 20080709
  22. SUCRALFATE [Concomitant]
     Route: 048
  23. TIMOPTOL-XE [Concomitant]
     Indication: GLAUCOMA
     Dosage: DRUG: TIMOPTOL-XE(TIMOLOL MALEATE), NOTE: DOSAGE ADJUSTED, DOSE FORM: DROPS (INTRAOCULAR)
     Route: 047
  24. CEFDINIR [Concomitant]
     Dosage: DOSE FORM: FINE GRANULE
     Route: 048
     Dates: start: 20080516, end: 20080523
  25. ACTEMRA [Suspect]
     Indication: JUVENILE ARTHRITIS
     Route: 041
     Dates: start: 20080611, end: 20080723
  26. PREDNISOLONE [Concomitant]
     Route: 048
     Dates: start: 20080416, end: 20080425
  27. PREDNISOLONE [Concomitant]
     Route: 048
     Dates: start: 20080508, end: 20080516
  28. PREDNISOLONE [Concomitant]
     Route: 048
     Dates: start: 20090305, end: 20090422
  29. GENTAMICIN SULFATE [Concomitant]
     Dosage: DRUG: GENTACIN(GENTAMICIN SULFATE), DOSAGE ADJUSTED
     Route: 061
     Dates: start: 20080413, end: 20081203
  30. ACTEMRA [Suspect]
     Route: 041
     Dates: start: 20081119, end: 20081203
  31. ACTEMRA [Suspect]
     Route: 041
     Dates: start: 20090121, end: 20090318
  32. ACTEMRA [Suspect]
     Route: 041
     Dates: start: 20090406, end: 20090507
  33. ACTEMRA [Suspect]
     Route: 041
     Dates: start: 20091202, end: 20091202
  34. ACTEMRA [Suspect]
     Route: 041
  35. PREDNISOLONE [Concomitant]
     Route: 048
     Dates: start: 20080426, end: 20080507
  36. PREDNISOLONE [Concomitant]
     Route: 048
     Dates: start: 20080725, end: 20080807
  37. PREDNISOLONE [Concomitant]
     Route: 048
     Dates: start: 20081023, end: 20081106
  38. PREDNISOLONE [Concomitant]
     Route: 048
     Dates: start: 20081224, end: 20090107
  39. FELBINAC [Concomitant]
     Indication: JUVENILE ARTHRITIS
     Dosage: DOSE FORM: TAPE, NOTE: TAKEN AS NEEDED TO DOSAGE ADJUSTED, REPORTED AS SELTOUCH(FELBINAC)
     Route: 061
  40. IBRUPROFEN [Concomitant]
     Indication: JUVENILE ARTHRITIS
     Route: 048
     Dates: start: 20091222, end: 20100108
  41. ACTEMRA [Suspect]
     Route: 041
     Dates: start: 20080806, end: 20080815
  42. ACTEMRA [Suspect]
     Route: 041
     Dates: start: 20080827, end: 20080924
  43. ACTEMRA [Suspect]
     Route: 041
     Dates: start: 20081008, end: 20081022
  44. PREDNISOLONE [Concomitant]
     Route: 048
     Dates: start: 20080816, end: 20080827
  45. SUCRALFATE [Concomitant]
     Indication: PROPHYLAXIS
     Dosage: DRUG: ULCERLMIN(SUCRALFATE) DOSE FORM: FINE GRANULE
     Route: 048
  46. ALFAROL [Concomitant]
     Indication: PROPHYLAXIS
     Dosage: DRUG: ALFAROL POWDER(ALFACALCIDOL)
     Route: 048
  47. XALATAN [Concomitant]
     Indication: GLAUCOMA
     Dosage: DROPS: DROPS (INTRAOCULAR), NOTE: DOSAGE ADJUSTED
     Route: 047
  48. AZOPT [Concomitant]
     Indication: GLAUCOMA
     Dosage: DOSE FORM: DROPS (INTRAOCULAR), NOTE: DOSAGE ADJUSTED
     Route: 047
  49. WHITE PETROLATUM [Concomitant]
     Indication: PROPHYLAXIS
     Dosage: NOTE: DOSAGE ADJUSTED, DRUG: UNKNOWNDRUG(WHITE PETROLATUM)
     Route: 061
  50. ACTEMRA [Suspect]
     Route: 041
     Dates: start: 20081106, end: 20081106
  51. ACTEMRA [Suspect]
     Route: 041
     Dates: start: 20081212, end: 20090107
  52. PREDNISOLONE [Concomitant]
     Route: 048
     Dates: start: 20081009, end: 20081022
  53. PREDNISOLONE [Concomitant]
     Route: 048
     Dates: start: 20091204, end: 20100107
  54. PREDNISOLONE [Concomitant]
     Route: 048
  55. CEFDINIR [Concomitant]
     Route: 048
     Dates: start: 20090310, end: 20090312
  56. INFLUENZA HA VACCINE [Concomitant]
     Route: 058
     Dates: start: 20091105, end: 20091105
  57. ACTEMRA [Suspect]
     Route: 041
     Dates: start: 20091105, end: 20091105
  58. ACTEMRA [Suspect]
     Route: 041
     Dates: start: 20091221, end: 20100104
  59. PREDNISOLONE [Concomitant]
     Indication: JUVENILE ARTHRITIS
     Dosage: DRUG: UNKNOWNDRUG(PREDNISOLONE)
     Route: 048
  60. PREDNISOLONE [Concomitant]
     Route: 048
     Dates: start: 20080911, end: 20080924
  61. PREDNISOLONE [Concomitant]
     Route: 048
     Dates: start: 20080925, end: 20081008
  62. PREDNISOLONE [Concomitant]
     Route: 048
     Dates: start: 20090423, end: 20090101
  63. SUCRALFATE [Concomitant]
     Route: 048
     Dates: start: 20080710, end: 20080722
  64. ENALAPRIL MALEATE [Concomitant]
     Indication: HYPERTENSION
     Dosage: DRUG: RENIVACE(ENALAPRIL MALEATE)
     Route: 048
     Dates: start: 20080417, end: 20090131
  65. CEFDINIR [Concomitant]
     Route: 048
     Dates: start: 20080723, end: 20080730

REACTIONS (6)
  - LYMPHADENITIS [None]
  - INFLUENZA [None]
  - UPPER RESPIRATORY TRACT INFLAMMATION [None]
  - JUVENILE ARTHRITIS [None]
  - WHITE BLOOD CELL COUNT DECREASED [None]
  - STOMATITIS [None]
